FAERS Safety Report 15438675 (Version 1)
Quarter: 2018Q3

REPORT INFORMATION
  Report Type: Spontaneous
  Country: US (occurrence: US)
  Receive Date: 20180924
  Receipt Date: 20180924
  Transmission Date: 20181010
  Serious: No
  Sender: FDA-Public Use
  Company Number: None

PATIENT
  Age: 80 Year
  Sex: Female

DRUGS (2)
  1. LEVODOPA [Suspect]
     Active Substance: LEVODOPA
     Dates: start: 201709
  2. COSENTYX [Concomitant]
     Active Substance: SECUKINUMAB

REACTIONS (3)
  - Adverse drug reaction [None]
  - Product storage error [None]
  - Drug dose omission [None]

NARRATIVE: CASE EVENT DATE: 20180920
